FAERS Safety Report 11697910 (Version 1)
Quarter: 2015Q4

REPORT INFORMATION
  Report Type: Spontaneous
  Country: US (occurrence: US)
  Receive Date: 20151104
  Receipt Date: 20151104
  Transmission Date: 20160304
  Serious: No
  Sender: FDA-Public Use
  Company Number: GXBR2015US002139

PATIENT
  Age: 67 Year
  Sex: Male

DRUGS (1)
  1. OXAPROZIN TABLETS [Suspect]
     Active Substance: OXAPROZIN
     Indication: PAIN
     Dosage: 600 MG, BID WITH FOOD
     Route: 048
     Dates: start: 20150828, end: 20150828

REACTIONS (4)
  - Abdominal discomfort [Recovered/Resolved]
  - Disorientation [Recovered/Resolved]
  - Dizziness [Recovered/Resolved]
  - Sleep disorder [Recovered/Resolved]

NARRATIVE: CASE EVENT DATE: 20150828
